FAERS Safety Report 5283735-0 (Version None)
Quarter: 2007Q2

REPORT INFORMATION
  Report Type: 
  Country: None (occurrence: None)
  Receive Date: 20070402
  Receipt Date: 20070328
  Transmission Date: 20071010
  Serious: Yes (Other)
  Sender: FDA-Public Use
  Company Number: JP-GILEAD-2007-0011630

PATIENT
  Sex: Male

DRUGS (10)
  1. TRUVADA [Suspect]
     Indication: HIV INFECTION
     Route: 048
     Dates: start: 20060104
  2. EPIVIR [Suspect]
     Indication: HIV INFECTION
     Route: 048
     Dates: start: 19970901, end: 19980810
  3. EPIVIR [Suspect]
     Route: 048
     Dates: start: 19981102, end: 20010801
  4. EPIVIR [Suspect]
     Route: 048
     Dates: start: 20020123, end: 20060103
  5. ZERIT [Suspect]
     Indication: HIV INFECTION
     Route: 048
     Dates: start: 19980922, end: 20011022
  6. ZERIT [Suspect]
     Route: 048
     Dates: start: 20020123, end: 20060103
  7. REYATAZ [Suspect]
     Indication: HIV INFECTION
     Route: 048
     Dates: start: 20040310, end: 20060103
  8. REYATAZ [Suspect]
     Route: 048
     Dates: start: 20060104
  9. NORVIR [Suspect]
     Indication: HIV INFECTION
     Route: 048
     Dates: start: 20060104
  10. CROSS EIGHT M [Concomitant]

REACTIONS (1)
  - HEPATITIS C [None]
